FAERS Safety Report 13169608 (Version 2)
Quarter: 2017Q1

REPORT INFORMATION
  Report Type: Spontaneous
  Country: DE (occurrence: DE)
  Receive Date: 20170201
  Receipt Date: 20170313
  Transmission Date: 20170428
  Serious: Yes (Hospitalization)
  Sender: FDA-Public Use
  Company Number: PHHY2017DE012989

PATIENT
  Sex: Female

DRUGS (1)
  1. SANDIMMUN OPTORAL [Suspect]
     Active Substance: CYCLOSPORINE
     Indication: TRANSPLANT
     Dosage: FOR 13 YEARS
     Route: 065
     Dates: start: 2004, end: 201701

REACTIONS (1)
  - Gastric polyps [Unknown]

NARRATIVE: CASE EVENT DATE: 2009
